FAERS Safety Report 8529764-2 (Version None)
Quarter: 2012Q3

REPORT INFORMATION
  Report Type: 
  Country: None (occurrence: None)
  Receive Date: 20120723
  Receipt Date: 20120716
  Transmission Date: 20120928
  Serious: Yes (Life-Threatening, Hospitalization)
  Sender: FDA-Public Use
  Company Number: US-JNJFOC-20120708165

PATIENT
  Sex: Male
  Weight: 72.58 kg

DRUGS (2)
  1. FENTANYL-100 [Suspect]
     Indication: NECK SURGERY
     Route: 062
  2. FENTANYL-100 [Suspect]
     Route: 062
     Dates: end: 20100101

REACTIONS (22)
  - PNEUMONIA ASPIRATION [None]
  - LOSS OF CONSCIOUSNESS [None]
  - LUNG DISORDER [None]
  - BRAIN INJURY [None]
  - HYPERHIDROSIS [None]
  - FALL [None]
  - NEURALGIA [None]
  - DIZZINESS [None]
  - PNEUMONIA [None]
  - DYSPNOEA [None]
  - RENAL FAILURE ACUTE [None]
  - MUSCULOSKELETAL STIFFNESS [None]
  - AMNESIA [None]
  - INTESTINAL OBSTRUCTION [None]
  - OVERDOSE [None]
  - HEARING IMPAIRED [None]
  - MIGRAINE [None]
  - VISUAL IMPAIRMENT [None]
  - HYPOAESTHESIA [None]
  - HALLUCINATION [None]
  - PRODUCT QUALITY ISSUE [None]
  - STAPHYLOCOCCAL INFECTION [None]
